FAERS Safety Report 6613169-5 (Version None)
Quarter: 2010Q1

REPORT INFORMATION
  Report Type: 
  Country: None (occurrence: None)
  Receive Date: 20100304
  Receipt Date: 20100301
  Transmission Date: 20100710
  Serious: Yes (Life-Threatening)
  Sender: FDA-Public Use
  Company Number: US-ASTRAZENECA-2010SE06008

PATIENT
  Age: 17 Year
  Sex: Female

DRUGS (3)
  1. SEROQUEL XR [Suspect]
     Indication: BIPOLAR I DISORDER
     Route: 048
     Dates: start: 20090306, end: 20100120
  2. SEROQUEL XR [Suspect]
     Route: 048
     Dates: start: 20100121, end: 20100129
  3. CYMBALTA [Concomitant]
     Indication: DEPRESSION
     Dates: start: 20100121, end: 20100129

REACTIONS (1)
  - LARYNGOSPASM [None]
